FAERS Safety Report 6638927-2 (Version None)
Quarter: 2010Q1

REPORT INFORMATION
  Report Type: 
  Country: None (occurrence: None)
  Receive Date: 20100317
  Receipt Date: 20100308
  Transmission Date: 20100710
  Serious: Yes (Hospitalization, Other)
  Sender: FDA-Public Use
  Company Number: PHHY2010ZA14050

PATIENT
  Age: 71 Year
  Sex: Female

DRUGS (1)
  1. STALEVO 100 [Suspect]
     Dosage: 6 TABS PER DAY100/25(2) -1200/DAY
     Route: 048
     Dates: start: 20090101

REACTIONS (7)
  - MEDICATION ERROR [None]
  - NERVOUSNESS [None]
  - PANIC ATTACK [None]
  - THYROID DISORDER [None]
  - TREMOR [None]
  - ULCER [None]
  - WEIGHT DECREASED [None]
